FAERS Safety Report 11608927 (Version 1)
Quarter: 2015Q4

REPORT INFORMATION
  Report Type: Other
  Country: GB (occurrence: ES)
  Receive Date: 20151007
  Receipt Date: 20151007
  Transmission Date: 20160304
  Serious: Yes (Death, Hospitalization, Other)
  Sender: FDA-Public Use
  Company Number: ES-CLARIS PHARMASERVICES-1042716

PATIENT
  Age: 81 Year
  Sex: Female

DRUGS (2)
  1. LEVOFLOXACIN. [Suspect]
     Active Substance: LEVOFLOXACIN
     Indication: PNEUMONIA
     Route: 042
  2. ACENOCOUMAROL [Suspect]
     Active Substance: ACENOCOUMAROL
     Route: 048

REACTIONS (2)
  - International normalised ratio increased [Fatal]
  - Drug interaction [Fatal]
